FAERS Safety Report 10177341 (Version 1)
Quarter: 2014Q2

REPORT INFORMATION
  Report Type: Spontaneous
  Country: US (occurrence: None)
  Receive Date: 20140416
  Receipt Date: 20140416
  Transmission Date: 20141212
  Serious: Yes (Hospitalization, Other)
  Sender: FDA-Public Use
  Company Number: 163-POMAL-14010401

PATIENT
  Age: 64 Year
  Sex: Male
  Weight: 69.4 kg

DRUGS (14)
  1. POMALYST [Suspect]
     Indication: PLASMA CELL MYELOMA
     Route: 048
     Dates: start: 201312
  2. ZOMETA (ZOLEDRONIC ACID) (UNKNOWN) [Concomitant]
  3. ACYCLOVIR (ACICLOVIR) (ACICLOVIR) [Concomitant]
  4. AMLODIPINE (AMLODIPINE) [Concomitant]
  5. ATIVAN (LORAZEPAM) [Concomitant]
  6. CITALOPRAM (CITALOPRAM) [Concomitant]
  7. CLONAZEPAM (CLONAZEPAM) [Concomitant]
  8. FINASTERIDE (FINASTERIDE) [Concomitant]
  9. LISINOPRIL (LISINOPRIL) [Concomitant]
  10. LORAZEPAM (LORAZEPAM) [Concomitant]
  11. OXYBUTYNIN CHLORIDE (OXYBUTYNIN HYDROCHLORIDE) [Concomitant]
  12. PROCHLORPERAZINE MALEATE (PROCHLORPERAZINE MALEATE) [Concomitant]
  13. RISPERDAL [Concomitant]
  14. DECADRON (DEXAMETHASONE) [Concomitant]
     Indication: PLASMA CELL MYELOMA
     Dates: start: 200705, end: 20070725

REACTIONS (6)
  - Pyrexia [None]
  - Platelet count decreased [None]
  - Soft tissue mass [None]
  - Plasma cell myeloma [None]
  - Pruritus [None]
  - Fatigue [None]
